FAERS Safety Report 8567758-1 (Version None)
Quarter: 2012Q3

REPORT INFORMATION
  Report Type: 
  Country: None (occurrence: None)
  Receive Date: 20120803
  Receipt Date: 20120711
  Transmission Date: 20120928
  Serious: Yes (Hospitalization)
  Sender: FDA-Public Use
  Company Number: JP-ASTRAZENECA-2012SE46022

PATIENT
  Age: 71 Year
  Sex: Male

DRUGS (3)
  1. HANGESHASHINTO [Suspect]
     Indication: DYSPEPSIA
     Route: 048
     Dates: start: 20120518, end: 20120627
  2. NEXIUM [Suspect]
     Indication: GASTROOESOPHAGEAL REFLUX DISEASE
     Route: 048
     Dates: start: 20120518, end: 20120627
  3. KOSOSAN [Concomitant]
     Indication: CHILLS
     Route: 048
     Dates: start: 20120625, end: 20120630

REACTIONS (2)
  - INTERSTITIAL LUNG DISEASE [None]
  - HEPATIC FUNCTION ABNORMAL [None]
